FAERS Safety Report 11798348 (Version 2)
Quarter: 2015Q4

REPORT INFORMATION
  Report Type: Other
  Country: PT (occurrence: PT)
  Receive Date: 20151203
  Receipt Date: 20151230
  Transmission Date: 20160305
  Serious: Yes (Hospitalization)
  Sender: FDA-Public Use
  Company Number: PT-ASTELLAS-2015US042551

PATIENT
  Age: 41 Year
  Sex: Female

DRUGS (2)
  1. BETMIGA [Suspect]
     Active Substance: MIRABEGRON
     Indication: HYPERTONIC BLADDER
     Route: 048
     Dates: start: 2015, end: 2015
  2. ALZEN                              /01270902/ [Concomitant]
     Indication: PRODUCT USED FOR UNKNOWN INDICATION
     Route: 048
     Dates: start: 2015

REACTIONS (5)
  - Vulvovaginal rash [Recovered/Resolved]
  - Hypertonic bladder [Recovering/Resolving]
  - Rash [Recovered/Resolved]
  - Rash pruritic [Recovered/Resolved]
  - Rash papular [Recovered/Resolved]

NARRATIVE: CASE EVENT DATE: 2015
